FAERS Safety Report 7710576-4 (Version None)
Quarter: 2011Q3

REPORT INFORMATION
  Report Type: 
  Country: None (occurrence: None)
  Receive Date: 20110825
  Receipt Date: 20110822
  Transmission Date: 20111222
  Serious: Yes (Other)
  Sender: FDA-Public Use
  Company Number: DE-BAYER-2011-045814

PATIENT
  Age: 46 Year
  Sex: Female

DRUGS (3)
  1. FALITHROM [Concomitant]
     Indication: DEEP VEIN THROMBOSIS
  2. MIRENA [Suspect]
     Indication: CONTRACEPTION
     Dosage: UNK
     Route: 015
     Dates: start: 20080130
  3. FALITHROM [Concomitant]
     Indication: PULMONARY EMBOLISM
     Dosage: UNK
     Dates: start: 20070101

REACTIONS (6)
  - PREGNANCY WITH CONTRACEPTIVE DEVICE [None]
  - ABDOMINAL PAIN [None]
  - METRORRHAGIA [None]
  - DEVICE DISLOCATION [None]
  - AMENORRHOEA [None]
  - MENORRHAGIA [None]
